FAERS Safety Report 24988080 (Version 1)
Quarter: 2025Q1

REPORT INFORMATION
  Report Type: Spontaneous
  Country: NL (occurrence: NL)
  Receive Date: 20250220
  Receipt Date: 20250220
  Transmission Date: 20250409
  Serious: Yes (Hospitalization, Other)
  Sender: TAKEDA
  Company Number: NL-TAKEDA-2025TUS015874

PATIENT
  Sex: Male

DRUGS (2)
  1. ADZYNMA [Suspect]
     Active Substance: ADAMTS13, RECOMBINANT-KRHN
     Indication: Product used for unknown indication
     Dosage: 40 INTERNATIONAL UNIT/KILOGRAM, Q3WEEKS
     Dates: start: 20241205
  2. ADZYNMA [Suspect]
     Active Substance: ADAMTS13, RECOMBINANT-KRHN
     Dosage: 40 INTERNATIONAL UNIT/KILOGRAM, Q3WEEKS
     Dates: start: 20241228

REACTIONS (2)
  - Cerebral infarction [Unknown]
  - ADAMTS13 activity increased [Unknown]
